FAERS Safety Report 9355913 (Version 1)
Quarter: 2013Q2

REPORT INFORMATION
  Report Type: Spontaneous
  Country: CA (occurrence: CA)
  Receive Date: 20130619
  Receipt Date: 20130619
  Transmission Date: 20140414
  Serious: Yes (Hospitalization, Other)
  Sender: FDA-Public Use
  Company Number: CA-JNJFOC-20130611127

PATIENT
  Age: 54 Year
  Sex: Female

DRUGS (2)
  1. REMICADE [Suspect]
     Indication: COLITIS ULCERATIVE
     Dosage: FIRST TWO INDUCTION DOSES
     Route: 042
  2. IMURAN [Concomitant]
     Route: 065

REACTIONS (2)
  - B-cell lymphoma [Unknown]
  - Intestinal perforation [Unknown]
